FAERS Safety Report 17828702 (Version 2)
Quarter: 2020Q2

REPORT INFORMATION
  Report Type: Report from Study
  Country: US (occurrence: US)
  Receive Date: 20200527
  Receipt Date: 20200529
  Transmission Date: 20200714
  Serious: Yes (Hospitalization)
  Sender: FDA-Public Use
  Company Number: US-PFIZER INC-2020196248

PATIENT
  Age: 65 Year
  Sex: Female
  Weight: 64.3 kg

DRUGS (2)
  1. IBRANCE [Suspect]
     Active Substance: PALBOCICLIB
     Indication: NON-SMALL CELL LUNG CANCER METASTATIC
     Dosage: 75 MG, DAILY
     Dates: start: 20191023, end: 20200505
  2. CISPLATIN. [Suspect]
     Active Substance: CISPLATIN
     Indication: NON-SMALL CELL LUNG CANCER METASTATIC
     Dosage: 627/6AUC MG/M2/DOSE, MONTHLY
     Dates: start: 20191023, end: 20200415

REACTIONS (2)
  - Abdominal pain [Unknown]
  - Dyspnoea [Not Recovered/Not Resolved]

NARRATIVE: CASE EVENT DATE: 20200514
